FAERS Safety Report 5413009-6 (Version None)
Quarter: 2007Q3

REPORT INFORMATION
  Report Type: 
  Country: None (occurrence: None)
  Receive Date: 20070713
  Receipt Date: 20070423
  Transmission Date: 20080115
  Serious: No
  Sender: FDA-Public Use
  Company Number: 2005SP000931

PATIENT
  Age: 44 Year
  Sex: Female
  Weight: 39.0093 kg

DRUGS (5)
  1. LUNESTA [Suspect]
     Dosage: 1 MG; HS; ORAL, 2 MG; HS; ORAL, 1.5 MG; HS; ORAL
     Route: 048
     Dates: start: 20050408, end: 20050410
  2. LUNESTA [Suspect]
     Dosage: 1 MG; HS; ORAL, 2 MG; HS; ORAL, 1.5 MG; HS; ORAL
     Route: 048
     Dates: start: 20050411, end: 20050501
  3. LUNESTA [Suspect]
     Dosage: 1 MG; HS; ORAL, 2 MG; HS; ORAL, 1.5 MG; HS; ORAL
     Route: 048
     Dates: start: 20050521, end: 20050523
  4. ADDERALL 10 [Concomitant]
  5. EFFEXOR [Concomitant]

REACTIONS (3)
  - DRUG INEFFECTIVE [None]
  - MENORRHAGIA [None]
  - MIDDLE INSOMNIA [None]
